FAERS Safety Report 12842464 (Version 1)
Quarter: 2016Q4

REPORT INFORMATION
  Report Type: Spontaneous
  Country: GB (occurrence: GB)
  Receive Date: 20161013
  Receipt Date: 20161013
  Transmission Date: 20170207
  Serious: Yes (Other)
  Sender: FDA-Public Use
  Company Number: GB-ORION CORPORATION ORION PHARMA-TREX2016-1961

PATIENT
  Age: 59 Year
  Sex: Female

DRUGS (2)
  1. SIMPONI [Suspect]
     Active Substance: GOLIMUMAB
     Route: 065
  2. METHOTREXATE (TRADE NAME UNKNOWN) [Suspect]
     Active Substance: METHOTREXATE
     Route: 065

REACTIONS (8)
  - Spinal pain [Unknown]
  - Oedema peripheral [Unknown]
  - Lower respiratory tract infection [Unknown]
  - Blood pressure fluctuation [Unknown]
  - Influenza [Unknown]
  - Nerve injury [Unknown]
  - Intervertebral disc protrusion [Unknown]
  - Insomnia [Unknown]
